FAERS Safety Report 5227734-3 (Version None)
Quarter: 2007Q1

REPORT INFORMATION
  Report Type: 
  Country: None (occurrence: None)
  Receive Date: 20070202
  Receipt Date: 20070129
  Transmission Date: 20070707
  Serious: Yes (Hospitalization, Other)
  Sender: FDA-Public Use
  Company Number: FR-PFIZER INC-033-0981-M0200285

PATIENT
  Age: 74 Year
  Sex: Male

DRUGS (6)
  1. ATORVASTATIN CALCIUM [Suspect]
     Indication: ILL-DEFINED DISORDER
     Dosage: TEXT:UNKNOWN-FREQ:UNKNOWN
     Route: 065
  2. BENFLUOREX [Suspect]
     Indication: ILL-DEFINED DISORDER
     Dosage: TEXT:UNKNOWN-FREQ:UNKNOWN
     Route: 065
  3. TRIMETAZIDINE [Suspect]
     Indication: ILL-DEFINED DISORDER
     Dosage: TEXT:UNKNOWN-FREQ:UNKNOWN
     Route: 065
  4. CIPRALAN [Suspect]
     Indication: ILL-DEFINED DISORDER
     Dosage: TEXT:UNK-FREQ:UNK
     Route: 048
     Dates: start: 20020215, end: 20020325
  5. BISOPROLOL FUMARATE [Suspect]
     Indication: ILL-DEFINED DISORDER
     Dosage: TEXT:UNK-FREQ:UNK
     Route: 048
  6. FLUINDIONE [Suspect]
     Indication: ILL-DEFINED DISORDER
     Dosage: TEXT:UNK-FREQ:UNK
     Route: 048

REACTIONS (3)
  - COMA [None]
  - HYPOGLYCAEMIA [None]
  - RENAL FAILURE ACUTE [None]
